FAERS Safety Report 9803126 (Version 4)
Quarter: 2014Q1

REPORT INFORMATION
  Report Type: Spontaneous
  Country: US (occurrence: US)
  Receive Date: 20140108
  Receipt Date: 20140325
  Transmission Date: 20141002
  Serious: Yes (Other)
  Sender: FDA-Public Use
  Company Number: US-JNJFOC-20140101466

PATIENT
  Age: 77 Year
  Sex: Female
  Weight: 95.26 kg

DRUGS (9)
  1. XARELTO [Suspect]
     Indication: ATRIAL FIBRILLATION
     Route: 048
     Dates: start: 20131221
  2. XARELTO [Suspect]
     Indication: CEREBROVASCULAR ACCIDENT PROPHYLAXIS
     Route: 048
     Dates: start: 20131221
  3. ADVIL [Suspect]
     Indication: CYSTITIS INTERSTITIAL
     Route: 065
  4. MULTAQ [Concomitant]
     Indication: CARDIAC DISORDER
     Route: 048
     Dates: start: 2012
  5. MULTAQ [Concomitant]
     Indication: ATRIAL FIBRILLATION
     Route: 048
     Dates: start: 2012
  6. METOPROLOL [Concomitant]
     Indication: ATRIAL FIBRILLATION
     Route: 048
     Dates: start: 2012
  7. METOPROLOL [Concomitant]
     Indication: BLOOD PRESSURE
     Route: 048
     Dates: start: 2012
  8. KLOR CON [Concomitant]
     Indication: ATRIAL FIBRILLATION
     Route: 048
     Dates: start: 2013
  9. ELMIRON [Concomitant]
     Indication: CYSTITIS INTERSTITIAL
     Route: 065

REACTIONS (4)
  - Atrial fibrillation [Recovered/Resolved]
  - Blood pressure systolic increased [Not Recovered/Not Resolved]
  - Skin disorder [Recovered/Resolved]
  - Inappropriate schedule of drug administration [Unknown]
